FAERS Safety Report 9118278 (Version 1)
Quarter: 2013Q1

REPORT INFORMATION
  Report Type: Spontaneous
  Country: US (occurrence: US)
  Receive Date: 20130125
  Receipt Date: 20130125
  Transmission Date: 20140127
  Serious: Yes (Other)
  Sender: FDA-Public Use
  Company Number: US-RB-047336-12

PATIENT
  Age: 1 Day
  Sex: Male

DRUGS (4)
  1. SUBOXONE FILM [Suspect]
     Indication: DEPENDENCE
     Dosage: SUBOXONE FILM
     Route: 064
     Dates: start: 20110814, end: 20120201
  2. BUPRENORPHINE [Suspect]
     Indication: PRODUCT USED FOR UNKNOWN INDICATION
     Route: 064
     Dates: start: 20120201, end: 20120615
  3. NICOTINE [Suspect]
     Indication: TOBACCO USER
     Dosage: 8 CIGARETTES DAILY
     Route: 064
     Dates: end: 20120615
  4. PRENATAL VITAMINS [Suspect]
     Indication: PRODUCT USED FOR UNKNOWN INDICATION
     Dosage: DOSING DETAILS UNKNOWN
     Route: 064
     Dates: start: 201110

REACTIONS (7)
  - Foetal exposure during pregnancy [Recovered/Resolved]
  - Premature baby [Recovered/Resolved]
  - Low birth weight baby [Recovered/Resolved]
  - Drug withdrawal syndrome neonatal [Recovered/Resolved]
  - Maternal drugs affecting foetus [None]
  - Tremor [None]
  - Neonatal disorder [None]
